FAERS Safety Report 23538071 (Version 2)
Quarter: 2024Q3

REPORT INFORMATION
  Report Type: Spontaneous
  Country: JP (occurrence: JP)
  Receive Date: 20240219
  Receipt Date: 20240705
  Transmission Date: 20241016
  Serious: Yes (Death, Other)
  Sender: ASTELLAS
  Company Number: JP-ASTELLAS-2024JP001207

PATIENT
  Sex: Male

DRUGS (1)
  1. PADCEV [Suspect]
     Active Substance: ENFORTUMAB VEDOTIN-EJFV
     Indication: Transitional cell carcinoma
     Dosage: UNK UNK, UNKNOWN FREQ.
     Route: 065

REACTIONS (1)
  - Malignant neoplasm progression [Fatal]

NARRATIVE: CASE EVENT DATE: 20230101
